FAERS Safety Report 8282966-5 (Version None)
Quarter: 2012Q1

REPORT INFORMATION
  Report Type: 
  Country: None (occurrence: None)
  Receive Date: 20120329
  Receipt Date: 20120316
  Transmission Date: 20120608
  Serious: Yes (Other)
  Sender: FDA-Public Use
  Company Number: OMX-2012-00004

PATIENT
  Sex: Male

DRUGS (2)
  1. EVITHROM [Suspect]
     Indication: PRODUCT USED FOR UNKNOWN INDICATION
     Dates: start: 20120315, end: 20120315
  2. SURGIFLO [Concomitant]

REACTIONS (2)
  - PROCEDURAL HAEMORRHAGE [None]
  - PROCEDURAL COMPLICATION [None]
